FAERS Safety Report 8164378-8 (Version None)
Quarter: 2012Q1

REPORT INFORMATION
  Report Type: 
  Country: None (occurrence: None)
  Receive Date: 20120224
  Receipt Date: 20120215
  Transmission Date: 20120608
  Serious: Yes (Hospitalization)
  Sender: FDA-Public Use
  Company Number: PHHO2011US018598

PATIENT
  Sex: Female
  Weight: 65.4 kg

DRUGS (30)
  1. REGLAN [Concomitant]
     Dosage: 5 MG, QD
     Route: 048
  2. ASPIRIN [Concomitant]
     Indication: CORONARY ARTERY DISEASE
     Dosage: 81 MG, DAILY
     Route: 048
     Dates: start: 19990115
  3. BLINDED PLACEBO [Suspect]
     Indication: CARDIAC FAILURE ACUTE
     Dosage: CODE NOT BROKEN
     Route: 048
     Dates: start: 20111029, end: 20111102
  4. FUROSEMIDE [Suspect]
     Dosage: 40 MG, QD
     Route: 048
  5. ZYLOPRIM [Concomitant]
     Dosage: 100 MG, QD
     Route: 048
  6. ZETIA [Concomitant]
     Dosage: 10 MG, QHS
     Route: 048
  7. METOLAZONE [Concomitant]
     Dosage: 25 MG, QD
     Route: 048
  8. ATORVASTATIN [Concomitant]
     Indication: HYPERLIPIDAEMIA
     Dosage: 40 MG, DAILY
     Dates: start: 20060115
  9. ISOSORBIDE DINITRATE [Concomitant]
     Indication: CARDIAC FAILURE CHRONIC
     Dosage: 40 MG, TID
     Route: 048
     Dates: start: 20060115
  10. BLINDED ALISKIREN [Suspect]
     Indication: CARDIAC FAILURE ACUTE
     Dosage: CODE NOT BROKEN
     Route: 048
     Dates: start: 20111029, end: 20111102
  11. BLINDED NO TREATMENT RECEIVED [Suspect]
     Indication: CARDIAC FAILURE ACUTE
     Dosage: CODE NOT BROKEN
     Route: 048
     Dates: start: 20111029, end: 20111102
  12. MECLIZINE HYDROCHLORIDE [Concomitant]
     Dosage: 25 MG, QD
     Route: 048
  13. GABAPENTIN [Concomitant]
     Dosage: 600 MG, Q12H
     Route: 048
  14. WARFARIN SODIUM [Concomitant]
     Indication: ATRIAL FIBRILLATION
     Dosage: 5 MG, DAILY
     Dates: start: 19940115
  15. LIPITOR [Concomitant]
     Dosage: 80 MG, QHS
     Route: 048
  16. COLACE [Concomitant]
     Dosage: 100 MG, BID
     Route: 048
  17. WARFARIN SODIUM [Concomitant]
     Dosage: 7.5 MG, QSSMT
     Route: 048
  18. TORSEMIDE [Concomitant]
     Dosage: 40 MG, BID
  19. FEOSOL [Concomitant]
     Dosage: 324 MG, BID
     Route: 048
  20. APRESOLINE [Concomitant]
     Dosage: 25 MG, Q8H
     Route: 048
  21. ISORDIL [Concomitant]
     Dosage: 40 MG, TID
     Route: 048
  22. NITROSTAT [Concomitant]
     Dosage: 0.4 MG, Q5M PRN
     Route: 060
  23. BRIMONIDINE TARTRATE [Concomitant]
     Indication: GLAUCOMA
     Dosage: 1 DF, Q12H
  24. METOPROLOL SUCCINATE [Concomitant]
     Indication: CARDIAC FAILURE CHRONIC
     Dosage: 25 MG, DAILY
     Route: 048
     Dates: start: 20060115
  25. SPIRONOLACTONE [Concomitant]
     Indication: CARDIAC FAILURE CHRONIC
     Dosage: 12.5 MG, DAILY
     Dates: start: 20060115
  26. ALDACTONE [Concomitant]
     Indication: CARDIAC FAILURE CHRONIC
     Dosage: 12.5 MG, QD
     Route: 048
     Dates: start: 20060115
  27. VENTOLIN [Concomitant]
     Dosage: 2 INHALATION INH QID PRN
  28. ASPIRIN [Concomitant]
     Dosage: 81 MG, QD
     Route: 048
  29. TIMOLOL MALEATE [Concomitant]
     Indication: GLAUCOMA
     Dosage: 1 DF, Q12H
  30. TOPROL-XL [Concomitant]
     Dosage: 25 MG, QD
     Route: 048

REACTIONS (2)
  - CARDIAC FAILURE [None]
  - RENAL IMPAIRMENT [None]
